FAERS Safety Report 10312361 (Version 2)
Quarter: 2014Q3

REPORT INFORMATION
  Report Type: Spontaneous
  Country: FR (occurrence: FR)
  Receive Date: 20140718
  Receipt Date: 20140723
  Transmission Date: 20150326
  Serious: Yes (Hospitalization)
  Sender: FDA-Public Use
  Company Number: FR-PFIZER INC-2014198895

PATIENT
  Age: 83 Year
  Sex: Female

DRUGS (7)
  1. CALCIPARINE [Concomitant]
     Active Substance: HEPARIN CALCIUM
     Dosage: TWICE A DAY
     Dates: start: 20080416
  2. PREVISCAN [Suspect]
     Active Substance: FLUINDIONE
     Dosage: TWICE A DAY
     Dates: start: 20080416
  3. AMIODARONE HCL [Suspect]
     Active Substance: AMIODARONE HYDROCHLORIDE
     Dosage: UNK
     Dates: start: 20080415
  4. ISKEDYL [Suspect]
     Active Substance: DIHYDROERGOCRISTINE MESYLATE\RAUBASINE
     Indication: COGNITIVE DISORDER
     Dosage: 2 DF, DAILY
     Route: 048
     Dates: end: 20040404
  5. TAHOR [Concomitant]
     Active Substance: ATORVASTATIN CALCIUM
     Dosage: 10MG
  6. AMIODARONE HCL [Suspect]
     Active Substance: AMIODARONE HYDROCHLORIDE
     Indication: ATRIAL FIBRILLATION
     Dosage: 142.8571 MG, DAILY
     Route: 048
     Dates: end: 20080404
  7. LEVOTHYROX [Concomitant]
     Active Substance: LEVOTHYROXINE
     Dosage: UNK

REACTIONS (13)
  - Presyncope [Recovered/Resolved]
  - Sinus arrhythmia [Unknown]
  - Nodal rhythm [Unknown]
  - Cardiac failure congestive [Recovered/Resolved]
  - Bradycardia [Recovered/Resolved]
  - Pulmonary arterial hypertension [Unknown]
  - Haemoglobin decreased [Unknown]
  - Blood glucose increased [Recovered/Resolved]
  - Wound infection bacterial [Unknown]
  - Activated partial thromboplastin time prolonged [Unknown]
  - Implant site haemorrhage [Unknown]
  - Malaise [Recovered/Resolved]
  - Transient ischaemic attack [Unknown]

NARRATIVE: CASE EVENT DATE: 20080404
